FAERS Safety Report 12469826 (Version 1)
Quarter: 2016Q2

REPORT INFORMATION
  Report Type: Spontaneous
  Country: DE (occurrence: DE)
  Receive Date: 20160615
  Receipt Date: 20160615
  Transmission Date: 20160815
  Serious: Yes (Hospitalization, Disabling)
  Sender: FDA-Public Use
  Company Number: DE-ASTRAZENECA-2016SE40856

PATIENT
  Age: 24576 Day
  Sex: Male
  Weight: 88 kg

DRUGS (20)
  1. IBUFLAM [Concomitant]
     Active Substance: IBUPROFEN
  2. FORXIGA [Suspect]
     Active Substance: DAPAGLIFLOZIN
     Indication: TYPE 2 DIABETES MELLITUS
     Route: 048
     Dates: start: 20151029, end: 20160407
  3. LEVOFLOXACIN. [Concomitant]
     Active Substance: LEVOFLOXACIN
     Dosage: 500 DAILY
  4. SPIRIVA [Concomitant]
     Active Substance: TIOTROPIUM BROMIDE MONOHYDRATE
  5. VALSARTAN. [Concomitant]
     Active Substance: VALSARTAN
     Dosage: 160/12.5 MG, EVERY MORNING
  6. NOVAMINSILFON [Concomitant]
  7. ADCIRCA [Concomitant]
     Active Substance: TADALAFIL
     Indication: PULMONARY HYPERTENSION
     Route: 048
     Dates: start: 20141210
  8. TILIDIN [Concomitant]
     Active Substance: NALOXONE HYDROCHLORIDE\TILIDINE HYDROCHLORIDE
     Dosage: 100/8 MG THREE TIMES A DAY
  9. REPAGLINIDE. [Concomitant]
     Active Substance: REPAGLINIDE
  10. FLUCONAZOLE. [Concomitant]
     Active Substance: FLUCONAZOLE
  11. CEFUROXIM [Concomitant]
     Active Substance: CEFUROXIME
  12. LANTUS SOLOSTAR [Concomitant]
     Active Substance: INSULIN GLARGINE
     Indication: DIABETES MELLITUS
     Dosage: 40 IU
     Route: 058
     Dates: start: 20131106
  13. GENTAMYCIN [Concomitant]
     Active Substance: GENTAMICIN
  14. MELOXICAM. [Concomitant]
     Active Substance: MELOXICAM
  15. CLOPIDOGREL [Concomitant]
     Active Substance: CLOPIDOGREL BISULFATE
  16. SIMVASTATIN. [Concomitant]
     Active Substance: SIMVASTATIN
  17. AMLODIPINE [Concomitant]
     Active Substance: AMLODIPINE BESYLATE
  18. PANTOZOL [Concomitant]
     Active Substance: PANTOPRAZOLE SODIUM
  19. ASPIRIN. [Concomitant]
     Active Substance: ASPIRIN
  20. FORMOTEROL [Concomitant]
     Active Substance: FORMOTEROL

REACTIONS (8)
  - Pyrexia [Unknown]
  - Urinary tract infection [Unknown]
  - Phimosis [Not Recovered/Not Resolved]
  - Epididymitis [Recovered/Resolved]
  - Balanoposthitis [Recovered/Resolved]
  - Benign prostatic hyperplasia [Unknown]
  - Erythema [Unknown]
  - Urinary retention [Not Recovered/Not Resolved]

NARRATIVE: CASE EVENT DATE: 20160329
